FAERS Safety Report 6446501-6 (Version None)
Quarter: 2009Q4

REPORT INFORMATION
  Report Type: 
  Country: None (occurrence: None)
  Receive Date: 20091119
  Receipt Date: 20091110
  Transmission Date: 20100525
  Serious: Yes (Hospitalization, Other)
  Sender: FDA-Public Use
  Company Number: US-NOVOPROD-300631

PATIENT
  Age: 47 Year
  Sex: Male

DRUGS (1)
  1. LEVEMIR [Suspect]
     Indication: DIABETES MELLITUS
     Dosage: 15 IU, UNK
     Route: 058

REACTIONS (3)
  - DRUG INEFFECTIVE [None]
  - HOSPITALISATION [None]
  - MYOCARDIAL INFARCTION [None]
